FAERS Safety Report 4298844-2 (Version None)
Quarter: 2004Q1

REPORT INFORMATION
  Report Type: 
  Country: None (occurrence: None)
  Receive Date: 20040126
  Receipt Date: 20031022
  Transmission Date: 20041129
  Serious: No
  Sender: FDA-Public Use
  Company Number: USA031050613

PATIENT
  Age: 9 Year
  Sex: Male
  Weight: 30 kg

DRUGS (2)
  1. STRATTERA [Suspect]
     Indication: ATTENTION DEFICIT/HYPERACTIVITY DISORDER
     Dosage: 18 MG/DAY
     Dates: start: 20030721, end: 20030725
  2. WELLBUTRIN [Concomitant]

REACTIONS (5)
  - ASTHENIA [None]
  - MASKED FACIES [None]
  - SKIN DISCOLOURATION [None]
  - SLUGGISHNESS [None]
  - SOMNOLENCE [None]
